FAERS Safety Report 9352201 (Version 3)
Quarter: 2013Q3

REPORT INFORMATION
  Report Type: Spontaneous
  Country: JP (occurrence: None)
  Receive Date: 20130612
  Receipt Date: 20130708
  Transmission Date: 20140515
  Serious: Yes (Hospitalization)
  Sender: FDA-Public Use
  Company Number: TCI2013A03305

PATIENT
  Age: 63 Year
  Sex: Female

DRUGS (4)
  1. TAKEPRON OD TABLETS 15 (LANSOPRAZOLE) [Suspect]
     Indication: GASTRITIS EROSIVE
     Dosage: 1 D
     Route: 048
     Dates: start: 201102, end: 201202
  2. TAKEPRON OD TABLETS 15 (LANSOPRAZOLE) [Suspect]
     Indication: GASTROOESOPHAGEAL REFLUX DISEASE
     Dosage: 1 D
     Route: 048
     Dates: start: 201102, end: 201202
  3. DEPAS (ETIZOLAM) [Concomitant]
  4. GASMOTIN (MOSAPRIDE CITRATE) [Concomitant]

REACTIONS (6)
  - Generalised oedema [None]
  - Colitis microscopic [None]
  - Diarrhoea [None]
  - Large intestinal ulcer [None]
  - Hypoproteinaemia [None]
  - Protein-losing gastroenteropathy [None]
